FAERS Safety Report 9372526 (Version 1)
Quarter: 2013Q2

REPORT INFORMATION
  Report Type: Spontaneous
  Country: GB (occurrence: None)
  Receive Date: 20130625
  Receipt Date: 20130625
  Transmission Date: 20140414
  Serious: Yes (Other)
  Sender: FDA-Public Use
  Company Number: GB-023706

PATIENT
  Age: 17 Year
  Sex: Male

DRUGS (18)
  1. MERCAPTOPURINE (MERCAPTOPURINE) [Suspect]
     Indication: BURKITT^S LYMPHOMA
     Dosage: UNKNOWN ( 1 DAYS) UNKNOWN
  2. TIOGUANINE [Suspect]
     Indication: BURKITT^S LYMPHOMA
  3. SULFAMETHOXAZOLE AND TRIMETHOPRIM [Suspect]
     Indication: PROPHYLAXIS
     Dosage: UNKNOWN ( 1 DAYS) UNKNOWN
  4. ACYCLOVIR (ACYCLOVIR) [Suspect]
     Indication: PROPHYLAXIS
     Dosage: UNKNOWN ( 1 DAYS) UNKNOWN
  5. ARA-C (CYTARABINE) [Suspect]
     Indication: BURKITT^S LYMPHOMA
  6. CAELYN [Suspect]
     Indication: BURKITT^S LYMPHOMA
     Dosage: 200 MILLIGRAM, INTRAVENOUS (NOT OTHERWISE SPECIFIED)
     Route: 042
  7. CYCLOPHOSPHAMIDE (CYCLOPHOSPHAMIDE) [Suspect]
     Dosage: UNKNOWN ( 1 DAYS) UNKNOWN
  8. DEXRAZOXANE [Suspect]
     Indication: ILL-DEFINED DISORDER
     Dosage: UNKNOWN ( 1 DAYS) UNKNOWN
  9. DOXORUBICIN (DOXORUBICIN) (DOXORUBICIN) [Suspect]
     Indication: BURKITT^S LYMPHOMA
  10. ETOPOSIDE (ETOPOSIDE) [Suspect]
     Indication: ILL-DEFINED DISORDER
  11. ITRACONAZOLE [Suspect]
     Indication: PROPHYLAXIS
     Dosage: UNKNOWN ( 1 DAYS) UNKNOWN
  12. METHOTREXATE (METHOTREXATE) [Suspect]
     Indication: BURKITT^S LYMPHOMA
     Dosage: UNKNOWN ( 1 DAYS) INTRATHECAL
     Route: 037
  13. PREDISOLONE [Suspect]
     Indication: BURKITT^S LYMPHOMA
  14. PREDNISOLONE (PREDNISOLONE) [Suspect]
     Indication: ILL-DEFINED DISORDER
  15. RITUXIMAB [Suspect]
     Indication: BURKITT^S LYMPHOMA
  16. TACROLIMUS (TACROLIMUS) [Suspect]
     Indication: IMMUNOSUPPRESSION
     Dosage: UNKNOWN ( 1 DAYS) UNKNOWN
  17. VINCRISTINE [Suspect]
     Indication: BURKITT^S LYMPHOMA
  18. VP-16 [Suspect]
     Indication: BURKITT^S LYMPHOMA
     Dosage: UNKNOWN ( 1 DAYS) UNKNOWN

REACTIONS (2)
  - Neutropenia [None]
  - Renal impairment [None]
